FAERS Safety Report 7456064-4 (Version None)
Quarter: 2011Q2

REPORT INFORMATION
  Report Type: 
  Country: None (occurrence: None)
  Receive Date: 20110503
  Receipt Date: 20110428
  Transmission Date: 20111010
  Serious: No
  Sender: FDA-Public Use
  Company Number: US-PFIZER INC-2011092867

PATIENT
  Sex: Female
  Weight: 72.562 kg

DRUGS (2)
  1. CHANTIX [Suspect]
     Indication: SMOKING CESSATION THERAPY
     Dosage: 1MG DAILY
     Route: 048
     Dates: start: 20110404, end: 20110418
  2. SYNTHROID [Concomitant]
     Indication: THYROID DISORDER
     Dosage: 0.075MG DAILY
     Route: 048

REACTIONS (2)
  - MOOD SWINGS [None]
  - DYSGEUSIA [None]
